FAERS Safety Report 10682965 (Version 1)
Quarter: 2014Q4

REPORT INFORMATION
  Report Type: Spontaneous
  Country: US (occurrence: None)
  Receive Date: 20141217
  Receipt Date: 20141217
  Transmission Date: 20150529
  Serious: Yes (Hospitalization)
  Sender: FDA-Public Use
  Company Number: TPA2009A03047

PATIENT
  Age: 49 Year
  Sex: Male
  Weight: 89.81 kg

DRUGS (5)
  1. KAPIDEX [Suspect]
     Active Substance: DEXLANSOPRAZOLE
     Indication: DYSPEPSIA
     Route: 048
     Dates: start: 20090811, end: 20090928
  2. VERAMYST (ALL OTHER THERAPEUTIC PRODUCTS) [Concomitant]
  3. PROTONIX (PANTOPRAZOLE) [Concomitant]
  4. WARFARIN [Concomitant]
     Active Substance: WARFARIN
  5. ZYRTEC [Concomitant]
     Active Substance: CETIRIZINE HYDROCHLORIDE

REACTIONS (2)
  - Overdose [None]
  - Hypertension [None]

NARRATIVE: CASE EVENT DATE: 200908
